FAERS Safety Report 4691397-6 (Version None)
Quarter: 2005Q2

REPORT INFORMATION
  Report Type: 
  Country: None (occurrence: None)
  Receive Date: 20050615
  Receipt Date: 20050505
  Transmission Date: 20051028
  Serious: No
  Sender: FDA-Public Use
  Company Number: 2005-39193

PATIENT
  Sex: Female

DRUGS (3)
  1. ENDOSOL EXTRA [Suspect]
     Indication: EYE IRRIGATION
     Dosage: 500ML, ONCE, INTRAOCULAR  031; ONE TIME
     Dates: start: 20050502
  2. VANCOMYCIN [Concomitant]
  3. EPINEPHRINE [Concomitant]

REACTIONS (3)
  - FUNGAL INFECTION [None]
  - PHARMACEUTICAL PRODUCT COMPLAINT [None]
  - POST PROCEDURAL COMPLICATION [None]
